FAERS Safety Report 4541450-2 (Version None)
Quarter: 2004Q4

REPORT INFORMATION
  Report Type: 
  Country: None (occurrence: None)
  Receive Date: 20041223
  Receipt Date: 20041011
  Transmission Date: 20050328
  Serious: No
  Sender: FDA-Public Use
  Company Number: US-JNJFOC-20041004063

PATIENT
  Age: 22 Year
  Sex: Female
  Weight: 95.2554 kg

DRUGS (2)
  1. ORTHO EVRA [Suspect]
     Indication: CONTRACEPTION
     Dosage: 1 DOSE (S), 3 IN 4 WEEKS, TRANSDERMAL
     Route: 062
     Dates: start: 20040101
  2. LEXAPRO [Concomitant]

REACTIONS (1)
  - VAGINAL DISCHARGE [None]
